FAERS Safety Report 5371473-5 (Version None)
Quarter: 2007Q2

REPORT INFORMATION
  Report Type: 
  Country: None (occurrence: None)
  Receive Date: 20070615
  Receipt Date: 20070411
  Transmission Date: 20071010
  Serious: Yes (Other)
  Sender: FDA-Public Use
  Company Number: 200711516US

PATIENT
  Age: 80 Year
  Sex: Female

DRUGS (11)
  1. LANTUS [Suspect]
     Indication: DIABETES MELLITUS INSULIN-DEPENDENT
  2. LANTUS [Suspect]
     Indication: DIABETES MELLITUS INSULIN-DEPENDENT
     Dosage: 14 VIA CARTRIDGE U QD
  3. OPTICLIK [Suspect]
     Indication: DIABETES MELLITUS INSULIN-DEPENDENT
     Dates: start: 20070227
  4. HUMALOG [Concomitant]
  5. PLAVIX [Concomitant]
  6. PROPRANOLOL [Concomitant]
  7. FOLIC ACID [Concomitant]
  8. FLURAZEPAM [Concomitant]
  9. TRAMADOL HCL [Concomitant]
  10. COZAAR [Concomitant]
  11. FORTEO [Concomitant]

REACTIONS (4)
  - ACCIDENTAL OVERDOSE [None]
  - BLOOD GLUCOSE INCREASED [None]
  - DRUG INEFFECTIVE [None]
  - HYPOGLYCAEMIA [None]
